FAERS Safety Report 8483048-X (Version None)
Quarter: 2012Q3

REPORT INFORMATION
  Report Type: 
  Country: None (occurrence: None)
  Receive Date: 20120702
  Receipt Date: 20120622
  Transmission Date: 20120928
  Serious: Yes (Hospitalization, Other)
  Sender: FDA-Public Use
  Company Number: TW-ABBOTT-12P-153-0931415-00

PATIENT
  Sex: Female
  Weight: 52 kg

DRUGS (7)
  1. HUMIRA [Suspect]
     Indication: RHEUMATOID ARTHRITIS
     Route: 058
     Dates: start: 20110725, end: 20120405
  2. SULFASALAZINE [Concomitant]
     Indication: PRODUCT USED FOR UNKNOWN INDICATION
     Dosage: 0.5 G 1 TAB TWICE DAILY
     Route: 048
  3. PLAQUENIL [Concomitant]
     Indication: PRODUCT USED FOR UNKNOWN INDICATION
     Dosage: 200MG 1 TAB TWICE DAILY
     Route: 048
  4. METHOTREXATE [Concomitant]
     Indication: PRODUCT USED FOR UNKNOWN INDICATION
     Dosage: 2.5MG 1 TAB THREE TIMES A WEEK
     Route: 048
  5. TRENTAL [Concomitant]
     Indication: PRODUCT USED FOR UNKNOWN INDICATION
     Dosage: 100MG 1 TAB THREE TIMES A DAY
     Route: 048
  6. ULTRACET [Concomitant]
     Indication: PRODUCT USED FOR UNKNOWN INDICATION
     Dosage: 1 TAB/QID
     Route: 048
  7. STILNOX FC [Concomitant]
     Indication: PRODUCT USED FOR UNKNOWN INDICATION
     Dosage: 10MG 1 TAB EVERY NIGHT
     Route: 048

REACTIONS (21)
  - ASCITES [None]
  - PERITONEAL TUBERCULOSIS [None]
  - METASTATIC NEOPLASM [None]
  - ALOPECIA [None]
  - RHEUMATOID ARTHRITIS [None]
  - OVARIAN CANCER [None]
  - RAYNAUD'S PHENOMENON [None]
  - OVERLAP SYNDROME [None]
  - OROPHARYNGEAL PAIN [None]
  - PLEURAL EFFUSION [None]
  - MUSCULOSKELETAL STIFFNESS [None]
  - INSOMNIA [None]
  - OSTEOPOROSIS [None]
  - PYREXIA [None]
  - SYSTEMIC SCLEROSIS [None]
  - SYSTEMIC LUPUS ERYTHEMATOSUS [None]
  - PAIN IN EXTREMITY [None]
  - ARTHRALGIA [None]
  - CHILLS [None]
  - MENOPAUSE [None]
  - UNEVALUABLE EVENT [None]
